FAERS Safety Report 6303201-0 (Version None)
Quarter: 2009Q3

REPORT INFORMATION
  Report Type: 
  Country: None (occurrence: None)
  Receive Date: 20090810
  Receipt Date: 20081230
  Transmission Date: 20100115
  Serious: No
  Sender: FDA-Public Use
  Company Number: A0762052A

PATIENT
  Sex: Female

DRUGS (2)
  1. PAROXETINE HCL [Suspect]
     Indication: DEPRESSION
     Dosage: 10MG AT NIGHT
     Route: 048
     Dates: start: 20080101
  2. LORAZEPAM [Concomitant]

REACTIONS (1)
  - DRUG INEFFECTIVE [None]
